FAERS Safety Report 9292990 (Version 2)
Quarter: 2013Q3

REPORT INFORMATION
  Report Type: Spontaneous
  Country: US (occurrence: US)
  Receive Date: 20130516
  Receipt Date: 20130802
  Transmission Date: 20140515
  Serious: No
  Sender: FDA-Public Use
  Company Number: US-PFIZER INC-2013146858

PATIENT
  Age: 18 Year
  Sex: Male
  Weight: 86.17 kg

DRUGS (2)
  1. CLINDAMYCIN PHOSPHATE [Suspect]
     Indication: ACNE
     Dosage: TWICE A DAY
     Dates: start: 2012
  2. CLINDAMYCIN PHOSPHATE [Suspect]
     Dosage: 2X/DAY
     Dates: start: 2012, end: 20130509

REACTIONS (4)
  - Product quality issue [Unknown]
  - Eye swelling [Not Recovered/Not Resolved]
  - Eye irritation [Not Recovered/Not Resolved]
  - Eye pain [Not Recovered/Not Resolved]
